FAERS Safety Report 14452287 (Version 1)
Quarter: 2018Q1

REPORT INFORMATION
  Report Type: Spontaneous
  Country: US (occurrence: US)
  Receive Date: 20180129
  Receipt Date: 20180129
  Transmission Date: 20180509
  Serious: No
  Sender: FDA-Public Use
  Company Number: US-ASTRAZENECA-2018SE10595

PATIENT
  Age: 481 Day
  Sex: Male
  Weight: 9.1 kg

DRUGS (1)
  1. SYNAGIS [Suspect]
     Active Substance: PALIVIZUMAB
     Indication: PREMATURE BABY
     Dosage: MONTHLY
     Route: 030
     Dates: start: 20161120

REACTIONS (2)
  - Respiratory syncytial virus test positive [Unknown]
  - Food allergy [Unknown]

NARRATIVE: CASE EVENT DATE: 20171005
